FAERS Safety Report 6504568-0 (Version None)
Quarter: 2009Q4

REPORT INFORMATION
  Report Type: 
  Country: None (occurrence: None)
  Receive Date: 20091215
  Receipt Date: 20091202
  Transmission Date: 20100525
  Serious: Yes (Other)
  Sender: FDA-Public Use
  Company Number: 200912IM000806

PATIENT
  Age: 23 Year
  Sex: Female

DRUGS (3)
  1. IMUKIN [Suspect]
     Indication: CHRONIC GRANULOMATOUS DISEASE
  2. ITRACONAZOLE [Suspect]
     Indication: CHRONIC GRANULOMATOUS DISEASE
  3. BACTRIM [Concomitant]

REACTIONS (2)
  - DISEASE PROGRESSION [None]
  - INFLAMMATORY BOWEL DISEASE [None]
